FAERS Safety Report 9552320 (Version 3)
Quarter: 2014Q1

REPORT INFORMATION
  Report Type: Spontaneous
  Country: JP (occurrence: JP)
  Receive Date: 20130925
  Receipt Date: 20140102
  Transmission Date: 20141002
  Serious: Yes (Hospitalization)
  Sender: FDA-Public Use
  Company Number: JP-EISAI INC-E7389-04211-SPO-JP

PATIENT
  Age: 66 Year
  Sex: Female

DRUGS (11)
  1. HALAVEN [Suspect]
     Indication: BREAST CANCER RECURRENT
     Route: 041
     Dates: start: 20130418, end: 20130829
  2. HALAVEN [Suspect]
     Route: 041
     Dates: start: 20130404, end: 20130404
  3. HALAVEN [Suspect]
     Route: 041
     Dates: start: 20130815, end: 20130829
  4. HALAVEN [Suspect]
     Route: 041
     Dates: start: 20130905, end: 20130905
  5. MUCOSTA [Concomitant]
     Route: 048
     Dates: start: 20130328, end: 20130919
  6. CALONAL [Concomitant]
     Indication: PYREXIA
     Route: 048
     Dates: start: 20130328, end: 20130919
  7. MOHRUS TAPE [Concomitant]
     Dosage: UNKNOWN
     Route: 065
     Dates: start: 20130711, end: 20130711
  8. DEXALTIN [Concomitant]
     Indication: STOMATITIS
     Dosage: UNKNOWN
     Route: 065
     Dates: start: 20130704, end: 20130704
  9. CIPROXAN [Concomitant]
     Indication: PYREXIA
     Route: 048
     Dates: start: 20130530, end: 20130601
  10. UNASYN [Concomitant]
     Indication: PYREXIA
     Route: 048
     Dates: start: 20130530, end: 20130601
  11. SP [Concomitant]
     Indication: PAIN
     Route: 048
     Dates: start: 20130411, end: 20130411

REACTIONS (1)
  - Interstitial lung disease [Recovering/Resolving]
